FAERS Safety Report 4362475-6 (Version None)
Quarter: 2004Q2

REPORT INFORMATION
  Report Type: 
  Country: None (occurrence: None)
  Receive Date: 20040521
  Receipt Date: 20040518
  Transmission Date: 20050107
  Serious: Yes (Other)
  Sender: FDA-Public Use
  Company Number: GB-GLAXOSMITHKLINE-B0333231A

PATIENT
  Age: 42 Year
  Sex: Male

DRUGS (2)
  1. COMBIVIR [Suspect]
     Indication: HIV INFECTION
     Route: 065
     Dates: start: 20000101
  2. SUSTIVA [Suspect]
     Indication: HIV INFECTION
     Route: 065
     Dates: start: 20000101

REACTIONS (1)
  - NEPHROLITHIASIS [None]
